FAERS Safety Report 21602066 (Version 2)
Quarter: 2022Q4

REPORT INFORMATION
  Report Type: Report from Study
  Country: DE (occurrence: DE)
  Receive Date: 20221116
  Receipt Date: 20221121
  Transmission Date: 20230113
  Serious: Yes (Hospitalization)
  Sender: FDA-Public Use
  Company Number: DE-EXELIXIS-XL18422057747

PATIENT

DRUGS (1)
  1. CABOZANTINIB [Suspect]
     Active Substance: CABOZANTINIB
     Indication: Neuroendocrine carcinoma
     Dosage: 60 MG, QD
     Dates: start: 20220223, end: 20221107

REACTIONS (1)
  - Cholestasis [Not Recovered/Not Resolved]

NARRATIVE: CASE EVENT DATE: 20221109
